FAERS Safety Report 9585445 (Version 1)
Quarter: 2013Q4

REPORT INFORMATION
  Report Type: Spontaneous
  Country: NL (occurrence: NL)
  Receive Date: 20131003
  Receipt Date: 20131003
  Transmission Date: 20140711
  Serious: Yes (Other)
  Sender: FDA-Public Use
  Company Number: NL-AMGEN-NLDSP2013068448

PATIENT
  Age: 77 Year
  Sex: Female

DRUGS (14)
  1. XGEVA [Suspect]
     Indication: PRODUCT USED FOR UNKNOWN INDICATION
     Dosage: UNK UNK, QMO
     Route: 058
     Dates: start: 201211
  2. INSULINE                           /01223401/ [Concomitant]
  3. MONO CEDOCARD [Concomitant]
  4. METOPROLOL SUCCINATE [Concomitant]
  5. TEVETENZ [Concomitant]
  6. OMEPRAZOL                          /00661201/ [Concomitant]
  7. TOLBUTAMIDE [Concomitant]
  8. CALCI CHEW [Concomitant]
  9. EXEMESTAAN [Concomitant]
  10. HYDROCHLOORTHIAZIDE [Concomitant]
  11. NITROFURANTIN [Concomitant]
  12. GLUCOSAMINE [Concomitant]
  13. MAGNESIUM [Concomitant]
  14. VIT C [Concomitant]

REACTIONS (3)
  - Impaired healing [Unknown]
  - Toothache [Unknown]
  - Tooth disorder [Unknown]
